FAERS Safety Report 24585059 (Version 1)
Quarter: 2024Q4

REPORT INFORMATION
  Report Type: Spontaneous
  Country: CA (occurrence: CA)
  Receive Date: 20241106
  Receipt Date: 20241106
  Transmission Date: 20250114
  Serious: Yes (Hospitalization, Other)
  Sender: B BRAUN
  Company Number: CA-B.Braun Medical Inc.-2164584

PATIENT
  Age: 7 Year
  Sex: Male

DRUGS (8)
  1. DEXTROSE [Suspect]
     Active Substance: DEXTROSE MONOHYDRATE
  2. DEXAMETHASONE [Suspect]
     Active Substance: DEXAMETHASONE
  3. VINCRISTINE [Suspect]
     Active Substance: VINCRISTINE
  4. ONCASPAR [Suspect]
     Active Substance: PEGASPARGASE
  5. METHOTREXATE [Suspect]
     Active Substance: METHOTREXATE
  6. MERCAPTOPURINE [Suspect]
     Active Substance: MERCAPTOPURINE
  7. GEMFIBROZIL [Suspect]
     Active Substance: GEMFIBROZIL
  8. ICOSAPENT [Suspect]
     Active Substance: ICOSAPENT

REACTIONS (3)
  - Drug ineffective [Recovered/Resolved]
  - Hypertriglyceridaemia [Recovered/Resolved]
  - Hypertransaminasaemia [Recovered/Resolved]
